FAERS Safety Report 7747528-4 (Version None)
Quarter: 2011Q3

REPORT INFORMATION
  Report Type: 
  Country: None (occurrence: None)
  Receive Date: 20110913
  Receipt Date: 20110909
  Transmission Date: 20111222
  Serious: Yes (Other)
  Sender: FDA-Public Use
  Company Number: US-PFIZER INC-2011212982

PATIENT
  Sex: Female
  Weight: 68.02 kg

DRUGS (7)
  1. XANAX [Suspect]
     Indication: INSOMNIA
     Dosage: 2 MG,DAILY
     Route: 048
  2. VITAMIN D [Concomitant]
     Dosage: UNK
  3. CARISOPRODOL [Concomitant]
     Indication: MUSCLE SPASMS
     Dosage: UNK
  4. PIROXICAM [Suspect]
     Dosage: UNK
  5. IMITREX [Suspect]
     Indication: HEADACHE
     Dosage: UNK
     Route: 048
  6. AMBIEN [Suspect]
     Indication: SLEEP DISORDER
     Dosage: UNK
     Route: 048
  7. DIHYDROERGOTAMINE [Concomitant]
     Dosage: 1 ML, AS NEEDED

REACTIONS (9)
  - BLOOD GLUCOSE FLUCTUATION [None]
  - EYE PAIN [None]
  - PAIN [None]
  - ABDOMINAL DISTENSION [None]
  - IRRITABLE BOWEL SYNDROME [None]
  - STRESS [None]
  - DRY EYE [None]
  - WEIGHT INCREASED [None]
  - DRUG INEFFECTIVE [None]
